FAERS Safety Report 25467339 (Version 1)
Quarter: 2025Q2

REPORT INFORMATION
  Report Type: Spontaneous
  Country: PL (occurrence: PL)
  Receive Date: 20250623
  Receipt Date: 20250623
  Transmission Date: 20250717
  Serious: Yes (Other)
  Sender: GLAND PHARMA LTD
  Company Number: PL-GLANDPHARMA-PL-2025GLNLIT01478

PATIENT
  Age: 91 Year
  Sex: Female

DRUGS (2)
  1. METOPROLOL TARTRATE [Suspect]
     Active Substance: METOPROLOL TARTRATE
     Indication: Hypertension
     Route: 065
  2. INDAPAMIDE [Concomitant]
     Active Substance: INDAPAMIDE
     Indication: Atrial fibrillation
     Route: 065

REACTIONS (2)
  - Pemphigus [Recovering/Resolving]
  - Product use in unapproved indication [Unknown]
